FAERS Safety Report 5498681-7 (Version None)
Quarter: 2007Q4

REPORT INFORMATION
  Report Type: 
  Country: None (occurrence: None)
  Receive Date: 20071026
  Receipt Date: 20071019
  Transmission Date: 20080405
  Serious: Yes (Other)
  Sender: FDA-Public Use
  Company Number: BR-ASTRAZENECA-2007UW24565

PATIENT
  Age: 75 Year
  Sex: Female
  Weight: 62 kg

DRUGS (7)
  1. ARIMIDEX [Suspect]
     Route: 048
     Dates: start: 20070530
  2. OSCAL D [Concomitant]
     Indication: SUPPLEMENTATION THERAPY
  3. SELOZOK [Concomitant]
     Route: 048
  4. RISEDROSS [Concomitant]
  5. ARADOIS [Concomitant]
  6. HYDERGINE [Concomitant]
  7. NEOZINE [Concomitant]

REACTIONS (6)
  - AMNESIA [None]
  - ARTHROPATHY [None]
  - CONFUSIONAL STATE [None]
  - FLUID RETENTION [None]
  - NERVOUSNESS [None]
  - PARAESTHESIA [None]
